FAERS Safety Report 7504653-0 (Version None)
Quarter: 2011Q2

REPORT INFORMATION
  Report Type: 
  Country: None (occurrence: None)
  Receive Date: 20110525
  Receipt Date: 20110421
  Transmission Date: 20111010
  Serious: Yes (Other)
  Sender: FDA-Public Use
  Company Number: US-AMGEN-QUU434338

PATIENT
  Age: 68 Year
  Sex: Male
  Weight: 92.517 kg

DRUGS (1)
  1. NPLATE [Suspect]
     Indication: IDIOPATHIC THROMBOCYTOPENIC PURPURA
     Dosage: 188 A?G, QWK
     Route: 058
     Dates: start: 20100413, end: 20100504

REACTIONS (3)
  - PAIN IN EXTREMITY [None]
  - THROMBOCYTOPENIA [None]
  - OEDEMA PERIPHERAL [None]
